FAERS Safety Report 10352365 (Version 1)
Quarter: 2014Q3

REPORT INFORMATION
  Report Type: Spontaneous
  Country: US (occurrence: US)
  Receive Date: 20140730
  Receipt Date: 20140730
  Transmission Date: 20150326
  Serious: No
  Sender: FDA-Public Use
  Company Number: US-ABBVIE-14P-163-1226625-00

PATIENT
  Sex: Female

DRUGS (3)
  1. CIPRO [Interacting]
     Active Substance: CIPROFLOXACIN HYDROCHLORIDE
     Indication: PRODUCT USED FOR UNKNOWN INDICATION
  2. EFFEXOR [Interacting]
     Active Substance: VENLAFAXINE HYDROCHLORIDE
     Indication: PRODUCT USED FOR UNKNOWN INDICATION
  3. SYNTHROID [Suspect]
     Active Substance: LEVOTHYROXINE SODIUM
     Indication: PRODUCT USED FOR UNKNOWN INDICATION

REACTIONS (9)
  - Drug dispensing error [Unknown]
  - Drug interaction [Unknown]
  - Asthenia [Unknown]
  - Trance [Unknown]
  - Tremor [Unknown]
  - Presyncope [Unknown]
  - Chest pain [Unknown]
  - Fatigue [Unknown]
  - Malaise [Unknown]
